FAERS Safety Report 9681204 (Version 4)
Quarter: 2014Q1

REPORT INFORMATION
  Report Type: Spontaneous
  Country: AU (occurrence: AU)
  Receive Date: 20131111
  Receipt Date: 20140307
  Transmission Date: 20141002
  Serious: Yes (Disabling, Other)
  Sender: FDA-Public Use
  Company Number: AU-PFIZER INC-2013216000

PATIENT
  Sex: Male
  Weight: 57.5 kg

DRUGS (10)
  1. REVATIO [Suspect]
     Indication: PULMONARY ARTERY ATRESIA
     Dosage: 20 MG, 3X/DAY
     Route: 048
     Dates: start: 2012
  2. REVATIO [Suspect]
     Indication: VENTRICULAR SEPTAL DEFECT
  3. REVATIO [Suspect]
     Indication: CONGENITAL ARTERIAL MALFORMATION
  4. REVATIO [Suspect]
     Indication: PULMONARY HYPERTENSION
  5. REVATIO [Suspect]
     Indication: HEART DISEASE CONGENITAL
  6. REVATIO [Suspect]
     Indication: PULMONARY ARTERIAL HYPERTENSION
  7. RAMIPRIL [Concomitant]
     Indication: CARDIAC FAILURE CONGESTIVE
     Dosage: 10 MG, 1X/DAY
     Route: 048
  8. CARVEDILOL [Concomitant]
     Indication: CARDIAC FAILURE CONGESTIVE
     Dosage: 25 MG, 2X/DAY
     Route: 048
  9. WARFARIN [Concomitant]
     Dosage: UNK
  10. EPLERENONE [Concomitant]

REACTIONS (3)
  - Atrial flutter [Unknown]
  - Left ventricular dysfunction [Not Recovered/Not Resolved]
  - Off label use [Not Recovered/Not Resolved]
